FAERS Safety Report 8399522-0 (Version None)
Quarter: 2012Q1

REPORT INFORMATION
  Report Type: 
  Country: None (occurrence: None)
  Receive Date: 20120323
  Receipt Date: 20110720
  Transmission Date: 20120608
  Serious: Yes (Other)
  Sender: FDA-Public Use
  Company Number: 163-21880-11072204

PATIENT
  Age: 79 Year
  Sex: Female

DRUGS (1)
  1. REVLIMID [Suspect]
     Indication: MYELODYSPLASTIC SYNDROME
     Dosage: 10 MG, DAILY FOR 21 DAYS THEN OFF 1WK, PO
     Route: 048
     Dates: start: 20110708, end: 20110718

REACTIONS (2)
  - RASH GENERALISED [None]
  - RASH PRURITIC [None]
